FAERS Safety Report 23299037 (Version 1)
Quarter: 2023Q4

REPORT INFORMATION
  Report Type: Spontaneous
  Country: US (occurrence: US)
  Receive Date: 20231215
  Receipt Date: 20231215
  Transmission Date: 20240109
  Serious: No
  Sender: FDA-Public Use
  Company Number: US-ENDO PHARMACEUTICALS INC-2023-001022

PATIENT
  Sex: Male

DRUGS (1)
  1. XIAFLEX [Suspect]
     Active Substance: COLLAGENASE CLOSTRIDIUM HISTOLYTICUM
     Indication: Peyronie^s disease
     Dosage: UNK UNKNOWN, UNKNOWN
     Route: 051

REACTIONS (5)
  - Penile size reduced [Not Recovered/Not Resolved]
  - Procedural pain [Unknown]
  - Penile contusion [Unknown]
  - Penile swelling [Unknown]
  - Drug ineffective [Unknown]
